FAERS Safety Report 7964114-1 (Version None)
Quarter: 2011Q4

REPORT INFORMATION
  Report Type: 
  Country: None (occurrence: None)
  Receive Date: 20111208
  Receipt Date: 20111129
  Transmission Date: 20120403
  Serious: Yes (Hospitalization)
  Sender: FDA-Public Use
  Company Number: VE-PERRIGO-11VE010457

PATIENT
  Age: 38 Year
  Sex: Male

DRUGS (6)
  1. IBUPROFEN [Suspect]
     Indication: ODYNOPHAGIA
     Dosage: UNK
     Route: 065
  2. IBUPROFEN [Suspect]
     Indication: ASTHENIA
  3. CEFADROXIL [Suspect]
     Indication: ODYNOPHAGIA
     Dosage: UNK
     Route: 065
  4. IBUPROFEN [Suspect]
     Indication: DYSPHAGIA
  5. CEFADROXIL [Suspect]
     Indication: ASTHENIA
  6. CEFADROXIL [Suspect]
     Indication: DYSPHAGIA

REACTIONS (1)
  - TOXIC EPIDERMAL NECROLYSIS [None]
